FAERS Safety Report 6389066-X (Version None)
Quarter: 2009Q4

REPORT INFORMATION
  Report Type: 
  Country: None (occurrence: None)
  Receive Date: 20091006
  Receipt Date: 20070813
  Transmission Date: 20100525
  Serious: Yes (Death, Other)
  Sender: FDA-Public Use
  Company Number: US-ASTRAZENECA-2006UW21616

PATIENT
  Age: 4354 Day
  Sex: Female
  Weight: 78 kg

DRUGS (29)
  1. SEROQUEL [Suspect]
     Indication: ANXIETY
     Dosage: 25 - 50 MG
     Route: 048
     Dates: start: 20010101, end: 20030501
  2. SEROQUEL [Suspect]
     Indication: ATTENTION DEFICIT/HYPERACTIVITY DISORDER
     Dosage: 25 - 50 MG
     Route: 048
     Dates: start: 20010101, end: 20030501
  3. SEROQUEL [Suspect]
     Indication: ABNORMAL BEHAVIOUR
     Dosage: 25 - 50 MG
     Route: 048
     Dates: start: 20010101, end: 20030501
  4. SEROQUEL [Suspect]
     Route: 048
     Dates: start: 20021118
  5. SEROQUEL [Suspect]
     Route: 048
     Dates: start: 20021118
  6. SEROQUEL [Suspect]
     Route: 048
     Dates: start: 20021118
  7. SEROQUEL [Suspect]
     Route: 048
     Dates: start: 20021118
  8. SEROQUEL [Suspect]
     Route: 048
     Dates: start: 20021118
  9. SEROQUEL [Suspect]
     Route: 048
     Dates: start: 20021118
  10. SEROQUEL [Suspect]
     Route: 048
     Dates: start: 20030101, end: 20030501
  11. SEROQUEL [Suspect]
     Route: 048
     Dates: start: 20030101, end: 20030501
  12. SEROQUEL [Suspect]
     Route: 048
     Dates: start: 20030101, end: 20030501
  13. CONCERTA [Concomitant]
     Dates: start: 20011213
  14. CONCERTA [Concomitant]
     Dosage: 18-50 MG
     Route: 048
     Dates: start: 20011213
  15. BLEPHAMIDE [Concomitant]
     Dates: start: 20030423
  16. AMOXIL [Concomitant]
     Dates: start: 20030131
  17. RESTORIL [Concomitant]
  18. CLONIDINE HCL [Concomitant]
     Dosage: 0.1-0.3 MG AT NIGHT
     Route: 048
     Dates: start: 19990427, end: 20011213
  19. CLONIDINE HCL [Concomitant]
     Dates: end: 20011213
  20. IMIPRAMINE H [Concomitant]
     Dates: start: 20001016, end: 20011213
  21. IMIPRAMINE H [Concomitant]
     Dates: end: 20011213
  22. WELLBUTRIN SR [Concomitant]
     Dates: start: 20001016, end: 20011213
  23. WELLBUTRIN SR [Concomitant]
     Dates: end: 20011213
  24. BENADRYL [Concomitant]
     Indication: SLEEP DISORDER
     Dates: start: 20011213
  25. BENADRYL [Concomitant]
     Route: 048
     Dates: start: 20011213
  26. MOTRIN [Concomitant]
     Dates: start: 20020804
  27. FLEXERIL [Concomitant]
     Dates: start: 20020804
  28. ACETAMIN [Concomitant]
     Dates: start: 20001113
  29. ZYRTEC [Concomitant]
     Dates: start: 20001113

REACTIONS (10)
  - CARDIAC ARREST [None]
  - CARDIO-RESPIRATORY ARREST [None]
  - CONGENITAL ECTODERMAL DYSPLASIA [None]
  - DIABETES MELLITUS [None]
  - DIABETIC COMPLICATION [None]
  - DIABETIC KETOACIDOSIS [None]
  - HEPATIC CONGESTION [None]
  - HEPATIC STEATOSIS [None]
  - PULMONARY CONGESTION [None]
  - PULMONARY OEDEMA [None]
